FAERS Safety Report 8719028 (Version 2)
Quarter: 2012Q4

REPORT INFORMATION
  Report Type: Report from Study
  Country: DE (occurrence: ES)
  Receive Date: 20120813
  Receipt Date: 20121213
  Transmission Date: 20130627
  Serious: Yes (Hospitalization)
  Sender: FDA-Public Use
  Company Number: ES-BRISTOL-MYERS SQUIBB COMPANY-16847477

PATIENT
  Age: 48 Year
  Sex: Female
  Weight: 60 kg

DRUGS (4)
  1. CETUXIMAB [Suspect]
     Indication: COLORECTAL CANCER METASTATIC
     Dosage: 9May12-9May12
16May12-27Jun12(42dys)
inter on 4Jul12
25Jul12-ong
     Route: 042
     Dates: start: 20120509
  2. 5-FLUOROURACIL [Suspect]
     Indication: COLORECTAL CANCER METASTATIC
     Dosage: 9May12-20Jun12(42dys)
No of inf 4
Most recent inf 20Jun12
inter on 4Jul12
25Jul12-ong
     Route: 042
     Dates: start: 20120509
  3. LEUCOVORIN [Suspect]
     Indication: COLORECTAL CANCER METASTATIC
     Dosage: 9May12-20Jun12(42dys)
Most recent inf 20Jun12
inter on 4Jul12
25Jul12-ong
     Route: 042
     Dates: start: 20120509
  4. IRINOTECAN [Suspect]
     Indication: COLORECTAL CANCER METASTATIC
     Dosage: 9May12-20Jun12(42dys)
No of inf 4
Most recent inf 20Jun12
inter on 4Jul12
25Jul12-ong
     Route: 042
     Dates: start: 20120509

REACTIONS (1)
  - Embolism [Recovered/Resolved]
